FAERS Safety Report 4963021-6 (Version None)
Quarter: 2006Q2

REPORT INFORMATION
  Report Type: 
  Country: None (occurrence: None)
  Receive Date: 20060405
  Receipt Date: 20060322
  Transmission Date: 20061013
  Serious: Yes (Life-Threatening, Hospitalization, Disabling)
  Sender: FDA-Public Use
  Company Number: ZA-JNJFOC-20060304491

PATIENT
  Sex: Male
  Weight: 4.9 kg

DRUGS (4)
  1. TOPIRAMATE [Suspect]
     Route: 048
  2. TOPIRAMATE [Suspect]
     Indication: PARTIAL SEIZURES
     Route: 048
  3. VALPROATE SODIUM [Suspect]
     Indication: COMPLEX PARTIAL SEIZURES
     Route: 048
  4. PHENOBARBITONE [Suspect]
     Indication: COMPLEX PARTIAL SEIZURES
     Route: 048

REACTIONS (39)
  - ALANINE AMINOTRANSFERASE INCREASED [None]
  - ANION GAP INCREASED [None]
  - ANISOCYTOSIS [None]
  - ASPARTATE AMINOTRANSFERASE INCREASED [None]
  - BACTERAEMIA [None]
  - BASE EXCESS INCREASED [None]
  - BLOOD ALBUMIN DECREASED [None]
  - BLOOD ALKALINE PHOSPHATASE INCREASED [None]
  - BLOOD BICARBONATE DECREASED [None]
  - BLOOD CALCIUM DECREASED [None]
  - BLOOD CHLORIDE INCREASED [None]
  - BLOOD CREATININE INCREASED [None]
  - BLOOD MAGNESIUM INCREASED [None]
  - BLOOD PH DECREASED [None]
  - BLOOD PHOSPHORUS INCREASED [None]
  - BLOOD POTASSIUM DECREASED [None]
  - BLOOD UREA INCREASED [None]
  - CARBON DIOXIDE DECREASED [None]
  - COUGH [None]
  - DEHYDRATION [None]
  - DIARRHOEA [None]
  - GAMMA-GLUTAMYLTRANSFERASE INCREASED [None]
  - GASTROENTERITIS [None]
  - GRAND MAL CONVULSION [None]
  - HAEMATOCRIT INCREASED [None]
  - HEPATOMEGALY [None]
  - LIVER FUNCTION TEST ABNORMAL [None]
  - METABOLIC ACIDOSIS [None]
  - MONOCYTE COUNT INCREASED [None]
  - PCO2 DECREASED [None]
  - PETECHIAE [None]
  - PLATELET COUNT DECREASED [None]
  - PNEUMONIA [None]
  - PO2 DECREASED [None]
  - POOR PERIPHERAL CIRCULATION [None]
  - PROTEIN TOTAL DECREASED [None]
  - RENAL IMPAIRMENT [None]
  - SEPSIS [None]
  - WHITE BLOOD CELL COUNT INCREASED [None]
